FAERS Safety Report 16601539 (Version 5)
Quarter: 2020Q4

REPORT INFORMATION
  Report Type: Report from Study
  Country: CO (occurrence: CO)
  Receive Date: 20190719
  Receipt Date: 20201016
  Transmission Date: 20210113
  Serious: Yes (Other)
  Sender: FDA-Public Use
  Company Number: PHHY2019CO168010

PATIENT
  Sex: Female
  Weight: 46 kg

DRUGS (5)
  1. FEMARA [Suspect]
     Active Substance: LETROZOLE
     Indication: BREAST CANCER
     Dosage: 2.5 MG, QD (DAILY)
     Route: 048
     Dates: start: 20181122
  2. KISQALI [Suspect]
     Active Substance: RIBOCICLIB
     Dosage: 600 MG, QD
     Route: 048
     Dates: start: 201907
  3. KISQALI [Suspect]
     Active Substance: RIBOCICLIB
     Dosage: 200 MG, QD
     Route: 048
     Dates: start: 20181122
  4. KISQALI [Suspect]
     Active Substance: RIBOCICLIB
     Dosage: 400 MG, QD
     Route: 048
  5. KISQALI [Suspect]
     Active Substance: RIBOCICLIB
     Indication: BREAST CANCER METASTATIC
     Dosage: 600 MG, QD
     Route: 048
     Dates: start: 20181122

REACTIONS (13)
  - Weight decreased [Unknown]
  - Depressed mood [Unknown]
  - General physical health deterioration [Unknown]
  - Vomiting [Recovered/Resolved]
  - Asphyxia [Unknown]
  - Kidney infection [Unknown]
  - Constipation [Unknown]
  - Epistaxis [Recovered/Resolved]
  - Lethargy [Unknown]
  - Decreased appetite [Unknown]
  - Concomitant disease aggravated [Unknown]
  - Gait disturbance [Recovered/Resolved]
  - Gastritis [Unknown]
